FAERS Safety Report 9128009 (Version 1)
Quarter: 2013Q1

REPORT INFORMATION
  Report Type: Spontaneous
  Country: FR (occurrence: FR)
  Receive Date: 20130228
  Receipt Date: 20130228
  Transmission Date: 20140127
  Serious: Yes (Hospitalization)
  Sender: FDA-Public Use
  Company Number: FR-JNJFOC-20130208766

PATIENT
  Age: 73 Year
  Sex: Male

DRUGS (7)
  1. RISPERDAL [Suspect]
     Indication: PRODUCT USED FOR UNKNOWN INDICATION
     Route: 048
     Dates: start: 20121226, end: 20121230
  2. CORDARONE [Concomitant]
     Route: 065
  3. ATENOLOL [Concomitant]
     Dosage: 50 (DOSE UNIT NOT SPECIFIED)
     Route: 065
  4. PREVISCAN (FLUINDIONE) [Concomitant]
     Route: 065
  5. MOPRAL [Concomitant]
     Route: 065
  6. DEPAKINE [Concomitant]
     Route: 065
  7. EXFORGE [Concomitant]
     Dosage: 5 MG/160 MG ONCE PER DAY
     Route: 065

REACTIONS (4)
  - Neuroleptic malignant syndrome [Recovered/Resolved]
  - Extrapyramidal disorder [Recovered/Resolved]
  - Leukocytosis [Recovered/Resolved]
  - Somnolence [Recovered/Resolved]
